FAERS Safety Report 15751076 (Version 1)
Quarter: 2018Q4

REPORT INFORMATION
  Report Type: Spontaneous
  Country: US (occurrence: US)
  Receive Date: 20181206
  Receipt Date: 20181206
  Transmission Date: 20190205
  Serious: No
  Sender: FDA-Public Use
  Company Number: None

PATIENT
  Age: 6 Month
  Sex: Female
  Weight: 7.2 kg

DRUGS (1)
  1. INFANTS IBUPROFEN [Suspect]
     Active Substance: IBUPROFEN
     Indication: TEETHING
     Dosage: ?          QUANTITY:50 ML;?
     Route: 048
     Dates: start: 20181124, end: 20181127

REACTIONS (4)
  - Gastrointestinal disorder [None]
  - Abdominal discomfort [None]
  - Flatulence [None]
  - Recalled product [None]

NARRATIVE: CASE EVENT DATE: 20181124
